FAERS Safety Report 5674669-8 (Version None)
Quarter: 2008Q1

REPORT INFORMATION
  Report Type: 
  Country: None (occurrence: None)
  Receive Date: 20080320
  Receipt Date: 20080314
  Transmission Date: 20080703
  Serious: Yes (Death)
  Sender: FDA-Public Use
  Company Number: A0716733A

PATIENT
  Age: 77 Year
  Sex: Female

DRUGS (3)
  1. ADVAIR DISKUS 100/50 [Suspect]
     Indication: SMOKER
     Dosage: 1PUFF TWICE PER DAY
     Route: 055
     Dates: start: 20050101
  2. INSULIN [Concomitant]
  3. SYNTHROID [Concomitant]

REACTIONS (3)
  - CARDIAC FAILURE [None]
  - PRODUCTIVE COUGH [None]
  - SWELLING [None]
